FAERS Safety Report 7299212-1 (Version None)
Quarter: 2011Q1

REPORT INFORMATION
  Report Type: 
  Country: None (occurrence: None)
  Receive Date: 20110217
  Receipt Date: 20110206
  Transmission Date: 20110831
  Serious: Yes (Other)
  Sender: FDA-Public Use
  Company Number: PHHY2011JP09233

PATIENT
  Age: 59 Year
  Sex: Male

DRUGS (2)
  1. FLUOROURACIL [Suspect]
     Dosage: 800 MG/M2, UNK
  2. CISPLATIN [Suspect]
     Dosage: 80 MG/M2, UNK

REACTIONS (6)
  - TOXIC ENCEPHALOPATHY [None]
  - COGNITIVE DISORDER [None]
  - ABNORMAL BEHAVIOUR [None]
  - DYSARTHRIA [None]
  - AMMONIA INCREASED [None]
  - DYSPHAGIA [None]
